FAERS Safety Report 4822433-1 (Version None)
Quarter: 2005Q4

REPORT INFORMATION
  Report Type: 
  Country: None (occurrence: None)
  Receive Date: 20051103
  Receipt Date: 20051103
  Transmission Date: 20060501
  Serious: Yes (Other)
  Sender: FDA-Public Use
  Company Number: None

PATIENT
  Sex: Male

DRUGS (1)
  1. TOLMETIN SODIUM [Suspect]
     Indication: ULCER
     Dosage: CAPSULES
     Dates: start: 20050420, end: 20050421

REACTIONS (4)
  - ABDOMINAL PAIN [None]
  - DRUG INEFFECTIVE [None]
  - PENILE HAEMORRHAGE [None]
  - ULCER [None]
